FAERS Safety Report 13658676 (Version 2)
Quarter: 2018Q3

REPORT INFORMATION
  Report Type: Report from Study
  Country: CO (occurrence: CO)
  Receive Date: 20170616
  Receipt Date: 20180727
  Transmission Date: 20181010
  Serious: Yes (Hospitalization, Disabling, Other)
  Sender: FDA-Public Use
  Company Number: CO-BRISTOL-MYERS SQUIBB COMPANY-BMS-2017-053018

PATIENT
  Age: 74 Year
  Sex: Female
  Weight: 45 kg

DRUGS (1)
  1. ABATACEPT [Suspect]
     Active Substance: ABATACEPT
     Indication: RHEUMATOID ARTHRITIS
     Dosage: 750 MG, QMO
     Route: 042
     Dates: start: 20081014

REACTIONS (8)
  - Influenza [Recovering/Resolving]
  - Swelling [Recovering/Resolving]
  - Nasopharyngitis [Recovering/Resolving]
  - Cerebrovascular accident [Unknown]
  - Malaise [Recovering/Resolving]
  - Cystitis [Unknown]
  - Arthritis [Recovering/Resolving]
  - Arthralgia [Recovering/Resolving]

NARRATIVE: CASE EVENT DATE: 20170529
